FAERS Safety Report 8507976-1 (Version None)
Quarter: 2012Q3

REPORT INFORMATION
  Report Type: 
  Country: None (occurrence: None)
  Receive Date: 20120713
  Receipt Date: 20120709
  Transmission Date: 20120928
  Serious: Yes (Other)
  Sender: FDA-Public Use
  Company Number: US-AMGEN-USASP2012042404

PATIENT
  Age: 59 Year
  Sex: Female

DRUGS (1)
  1. ENBREL [Suspect]
     Indication: RHEUMATOID ARTHRITIS
     Dosage: 50 MG, QWK
     Dates: start: 20120301, end: 20120624

REACTIONS (4)
  - CHOKING [None]
  - PRECANCEROUS CELLS PRESENT [None]
  - GASTROOESOPHAGEAL REFLUX DISEASE [None]
  - GASTRIC POLYPS [None]
